FAERS Safety Report 13301517 (Version 3)
Quarter: 2017Q4

REPORT INFORMATION
  Report Type: Report from Study
  Country: US (occurrence: US)
  Receive Date: 20170307
  Receipt Date: 20171101
  Transmission Date: 20180320
  Serious: Yes (Other)
  Sender: FDA-Public Use
  Company Number: US-ROCHE-1899268

PATIENT
  Sex: Male

DRUGS (5)
  1. ESBRIET [Suspect]
     Active Substance: PIRFENIDONE
     Route: 048
  2. ESBRIET [Suspect]
     Active Substance: PIRFENIDONE
     Indication: IDIOPATHIC PULMONARY FIBROSIS
     Route: 048
  3. ESBRIET [Suspect]
     Active Substance: PIRFENIDONE
     Dosage: 2 CAPSULE THREE TIMES A DAY (6 TOTAL A DAY)
     Route: 048
     Dates: start: 201612
  4. ESBRIET [Suspect]
     Active Substance: PIRFENIDONE
     Route: 065
     Dates: start: 201612, end: 201709
  5. ESBRIET [Suspect]
     Active Substance: PIRFENIDONE
     Dosage: 3 CAPSULE THREE TIMES A DAY (9 TOTAL A DAY)
     Route: 048

REACTIONS (9)
  - Aortic aneurysm [Not Recovered/Not Resolved]
  - Insomnia [Not Recovered/Not Resolved]
  - Diarrhoea [Recovered/Resolved]
  - Oropharyngeal discomfort [Recovered/Resolved]
  - Oxygen saturation decreased [Not Recovered/Not Resolved]
  - Nausea [Unknown]
  - Malaise [Unknown]
  - Abdominal pain lower [Recovered/Resolved]
  - Abdominal pain upper [Not Recovered/Not Resolved]
